FAERS Safety Report 6598060-5 (Version None)
Quarter: 2010Q1

REPORT INFORMATION
  Report Type: 
  Country: None (occurrence: None)
  Receive Date: 20100216
  Receipt Date: 20100201
  Transmission Date: 20100710
  Serious: Yes (Life-Threatening, Hospitalization, Disabling)
  Sender: FDA-Public Use
  Company Number: AUR-APL-2010-00330

PATIENT
  Age: 29 Year
  Sex: Female
  Weight: 55 kg

DRUGS (3)
  1. MIRTAZAPINE [Suspect]
     Indication: DEPRESSION
     Dosage: 28-X1,
     Dates: start: 20050118, end: 20050119
  2. PARACETAMOL TABLET [Suspect]
     Dosage: 6 TABLETS - X1 -
  3. ZOPICLONE [Concomitant]

REACTIONS (2)
  - HEPATIC FAILURE [None]
  - OVERDOSE [None]
